FAERS Safety Report 17976770 (Version 2)
Quarter: 2020Q4

REPORT INFORMATION
  Report Type: Spontaneous
  Country: US (occurrence: US)
  Receive Date: 20200703
  Receipt Date: 20201124
  Transmission Date: 20210113
  Serious: Yes (Other)
  Sender: FDA-Public Use
  Company Number: US-ASTRAZENECA-2020SE83336

PATIENT
  Age: 20494 Day
  Sex: Male
  Weight: 120.2 kg

DRUGS (36)
  1. PANTOPRAZOLE [Suspect]
     Active Substance: PANTOPRAZOLE
     Indication: GASTROOESOPHAGEAL REFLUX DISEASE
     Route: 065
     Dates: start: 2016
  2. MINOCYCLINE [Concomitant]
     Active Substance: MINOCYCLINE HYDROCHLORIDE
  3. VERAPAMIL [Concomitant]
     Active Substance: VERAPAMIL HYDROCHLORIDE
  4. GABAPENTIN. [Concomitant]
     Active Substance: GABAPENTIN
  5. VERAPAMIL [Concomitant]
     Active Substance: VERAPAMIL HYDROCHLORIDE
  6. LISINOPRIL. [Concomitant]
     Active Substance: LISINOPRIL
  7. DICYCLOMINE [Concomitant]
     Active Substance: DICYCLOMINE HYDROCHLORIDE
  8. PIOGLITAZONE. [Concomitant]
     Active Substance: PIOGLITAZONE
  9. HYDROCHLOROTHIAZIDE. [Concomitant]
     Active Substance: HYDROCHLOROTHIAZIDE
  10. VALACYCLOVIR [Concomitant]
     Active Substance: VALACYCLOVIR HYDROCHLORIDE
  11. PIOGLITAZONE. [Concomitant]
     Active Substance: PIOGLITAZONE
  12. ATORVASTATIN [Concomitant]
     Active Substance: ATORVASTATIN
  13. METOPROLOL TARTRATE. [Concomitant]
     Active Substance: METOPROLOL TARTRATE
  14. PRAMLINTIDE [Concomitant]
     Active Substance: PRAMLINTIDE
  15. DICLOFENAC [Concomitant]
     Active Substance: DICLOFENAC
  16. NEXIUM [Suspect]
     Active Substance: ESOMEPRAZOLE MAGNESIUM
     Indication: GASTROOESOPHAGEAL REFLUX DISEASE
     Route: 048
     Dates: start: 20120320
  17. TRETINOIN. [Concomitant]
     Active Substance: TRETINOIN
  18. HYDROCODONE [Concomitant]
     Active Substance: HYDROCODONE
  19. HUMALOG [Concomitant]
     Active Substance: INSULIN LISPRO
  20. ERGOCALCIFEROL. [Concomitant]
     Active Substance: ERGOCALCIFEROL
  21. SIMVASTATIN. [Concomitant]
     Active Substance: SIMVASTATIN
  22. TUMS [Concomitant]
     Active Substance: CALCIUM CARBONATE
  23. NIFEDIPINE. [Concomitant]
     Active Substance: NIFEDIPINE
  24. ISONIAZID. [Concomitant]
     Active Substance: ISONIAZID
  25. ERYTHROMYCIN. [Concomitant]
     Active Substance: ERYTHROMYCIN
  26. PEPTO-BISOMOL [Concomitant]
  27. LINAGLIPTIN [Concomitant]
     Active Substance: LINAGLIPTIN
  28. SULFAMETHAZINE [Concomitant]
     Active Substance: SULFAMETHAZINE
  29. METFORMIN [Concomitant]
     Active Substance: METFORMIN HYDROCHLORIDE
  30. NEXIUM [Suspect]
     Active Substance: ESOMEPRAZOLE MAGNESIUM
     Indication: GASTROOESOPHAGEAL REFLUX DISEASE
     Route: 048
     Dates: start: 2010, end: 2016
  31. ALLOPURINOL. [Concomitant]
     Active Substance: ALLOPURINOL
  32. FOSINOPRIL [Concomitant]
     Active Substance: FOSINOPRIL
  33. PYRIDOXINE [Concomitant]
     Active Substance: PYRIDOXINE
  34. DOXYCYCLINE. [Concomitant]
     Active Substance: DOXYCYCLINE
  35. FOSINOPRIL [Concomitant]
     Active Substance: FOSINOPRIL
  36. SITAGLIPTIN [Concomitant]
     Active Substance: SITAGLIPTIN

REACTIONS (4)
  - Chronic kidney disease [Not Recovered/Not Resolved]
  - Acute kidney injury [Not Recovered/Not Resolved]
  - Renal failure [Unknown]
  - Nephrogenic anaemia [Unknown]

NARRATIVE: CASE EVENT DATE: 20161220
